FAERS Safety Report 11546645 (Version 2)
Quarter: 2015Q3

REPORT INFORMATION
  Report Type: Spontaneous
  Country: GB (occurrence: US)
  Receive Date: 20150924
  Receipt Date: 20150924
  Transmission Date: 20151125
  Serious: Yes (Hospitalization)
  Sender: FDA-Public Use
  Company Number: US-FRESENIUS KABI-FK201504463

PATIENT
  Age: 13 Month
  Sex: Female

DRUGS (3)
  1. DEXTROSE. [Concomitant]
     Active Substance: DEXTROSE
     Indication: PRODUCT USED FOR UNKNOWN INDICATION
     Route: 065
  2. ACETAMINOPHEN. [Concomitant]
     Active Substance: ACETAMINOPHEN
     Indication: PRODUCT USED FOR UNKNOWN INDICATION
     Route: 048
  3. ACETYLCYSTEINE (MANUFACTURER UNKNOWN) (ACETYLCYSTEINE) (ACETYLCYSTEINE) [Suspect]
     Active Substance: ACETYLCYSTEINE
     Indication: ANALGESIC DRUG LEVEL INCREASED
     Route: 042

REACTIONS (3)
  - Drug dispensing error [Recovered/Resolved]
  - Generalised tonic-clonic seizure [Recovered/Resolved]
  - Hyponatraemia [Recovered/Resolved]
